FAERS Safety Report 8083945-3 (Version None)
Quarter: 2012Q1

REPORT INFORMATION
  Report Type: 
  Country: None (occurrence: None)
  Receive Date: 20120128
  Receipt Date: 20110117
  Transmission Date: 20120608
  Serious: No
  Sender: FDA-Public Use
  Company Number: US-ABBOTT-11P-163-0699033-00

PATIENT
  Sex: Female
  Weight: 79.45 kg

DRUGS (12)
  1. PREDNISONE TAB [Concomitant]
     Indication: PRODUCT USED FOR UNKNOWN INDICATION
  2. VITAMIN D [Concomitant]
     Indication: VITAMIN SUPPLEMENTATION
  3. METFFORMIN HYDROCHLORIDE [Concomitant]
     Indication: DIABETES MELLITUS
  4. IMURAN [Concomitant]
     Indication: COLITIS ULCERATIVE
  5. IMITREX [Concomitant]
     Indication: MIGRAINE
  6. ASACOL [Concomitant]
     Indication: COLITIS ULCERATIVE
  7. VITAMIN E [Concomitant]
     Indication: VITAMIN SUPPLEMENTATION
  8. HUMIRA [Suspect]
     Indication: COLITIS ULCERATIVE
     Route: 058
     Dates: start: 20101123
  9. VITAMIN B-12 [Concomitant]
     Indication: VITAMIN SUPPLEMENTATION
  10. PROZAC [Concomitant]
     Indication: DEPRESSION
  11. BUSPIRON [Concomitant]
     Indication: ANXIETY
  12. ABILIFY [Concomitant]
     Indication: MENTAL DISORDER

REACTIONS (4)
  - HAEMATOCHEZIA [None]
  - ABDOMINAL PAIN LOWER [None]
  - HEADACHE [None]
  - DIZZINESS [None]
